FAERS Safety Report 8610372-X (Version None)
Quarter: 2012Q3

REPORT INFORMATION
  Report Type: 
  Country: None (occurrence: None)
  Receive Date: 20120822
  Receipt Date: 20120821
  Transmission Date: 20120928
  Serious: Yes (Other)
  Sender: FDA-Public Use
  Company Number: PHHY2012NL067095

PATIENT
  Sex: Male
  Weight: 75 kg

DRUGS (6)
  1. ZOMETA [Suspect]
     Dosage: 4 MG,/ 100ML ONCE IN 28 DAYS
     Route: 042
     Dates: start: 20120628
  2. DURAGESIC-100 [Concomitant]
  3. ACETAMINOPHEN [Concomitant]
  4. ZOMETA [Suspect]
     Dosage: 4 MG,/ 100ML ONCE IN 28 DAYS
     Route: 042
     Dates: start: 20110908
  5. TRAMADOL HCL [Concomitant]
  6. ZOMETA [Suspect]
     Indication: PROSTATE CANCER METASTATIC
     Dosage: 4 MG,/ 100ML ONCE IN 28 DAYS
     Route: 042

REACTIONS (2)
  - TERMINAL STATE [None]
  - GENERAL PHYSICAL HEALTH DETERIORATION [None]
